FAERS Safety Report 6259694-0 (Version None)
Quarter: 2009Q3

REPORT INFORMATION
  Report Type: 
  Country: None (occurrence: None)
  Receive Date: 20090706
  Receipt Date: 20090706
  Transmission Date: 20100115
  Serious: Yes (Other)
  Sender: FDA-Public Use
  Company Number: None

PATIENT
  Age: 33 Year
  Sex: Male
  Weight: 68.0396 kg

DRUGS (1)
  1. ADDERALL 20 [Suspect]
     Dosage: 1 TABLET TWICE/DAY PO
     Route: 048
     Dates: start: 19970501, end: 20090705

REACTIONS (6)
  - DISTURBANCE IN ATTENTION [None]
  - DRUG EFFECT DECREASED [None]
  - FATIGUE [None]
  - FEELING ABNORMAL [None]
  - MUSCULAR WEAKNESS [None]
  - PRODUCT SUBSTITUTION ISSUE [None]
